FAERS Safety Report 18750307 (Version 2)
Quarter: 2021Q1

REPORT INFORMATION
  Report Type: Spontaneous
  Country: FI (occurrence: FI)
  Receive Date: 20210118
  Receipt Date: 20210311
  Transmission Date: 20210419
  Serious: Yes (Other)
  Sender: FDA-Public Use
  Company Number: FI-SA-2021SA009884

PATIENT
  Age: 52 Year
  Sex: Female

DRUGS (2)
  1. DUPIXENT [Suspect]
     Active Substance: DUPILUMAB
     Indication: DERMATITIS ATOPIC
     Dosage: 600 MG, 1X
     Route: 058
     Dates: start: 20200507, end: 20200507
  2. DUPIXENT [Suspect]
     Active Substance: DUPILUMAB
     Dosage: 300 MG, QOW
     Route: 058
     Dates: start: 202005, end: 20210203

REACTIONS (8)
  - Lysozyme increased [Unknown]
  - Infection [Unknown]
  - Nodule [Unknown]
  - Abdominal pain [Unknown]
  - Sarcoidosis [Unknown]
  - Pyrexia [Unknown]
  - Diarrhoea [Unknown]
  - Mucous stools [Unknown]

NARRATIVE: CASE EVENT DATE: 2002
